FAERS Safety Report 15095377 (Version 1)
Quarter: 2018Q3

REPORT INFORMATION
  Report Type: Spontaneous
  Country: CN (occurrence: CN)
  Receive Date: 20180702
  Receipt Date: 20180702
  Transmission Date: 20181010
  Serious: Yes (Hospitalization, Other)
  Sender: FDA-Public Use
  Company Number: CN-ACCORD-068900

PATIENT
  Age: 59 Year
  Sex: Male
  Weight: 68 kg

DRUGS (3)
  1. MYCOPHENOLIC ACID. [Concomitant]
     Active Substance: MYCOPHENOLIC ACID
     Indication: IMMUNOSUPPRESSION
  2. BASILIXIMAB [Concomitant]
     Active Substance: BASILIXIMAB
     Dosage: INTRAOPERATIVELY AND THE FOURTH DAY POSTOPERATION
  3. TACROLIMUS. [Suspect]
     Active Substance: TACROLIMUS
     Indication: IMMUNOSUPPRESSION
     Dosage: REDUCED TO 1MG (EVERY 12 HOURS), THEN STOPPED

REACTIONS (2)
  - Renal impairment [Recovered/Resolved]
  - Hepatic vein occlusion [Recovered/Resolved]
